FAERS Safety Report 9991264 (Version 1)
Quarter: 2014Q1

REPORT INFORMATION
  Report Type: Report from Study
  Country: US (occurrence: US)
  Receive Date: 20140310
  Receipt Date: 20140310
  Transmission Date: 20141002
  Serious: No
  Sender: FDA-Public Use
  Company Number: US-ABBVIE-13P-163-1133426-00

PATIENT
  Age: 52 Year
  Sex: Female

DRUGS (11)
  1. HUMIRA [Suspect]
     Indication: RHEUMATOID ARTHRITIS
     Dates: start: 20130712
  2. ZANTAC [Concomitant]
     Indication: GASTROOESOPHAGEAL REFLUX DISEASE
     Dosage: OVER THE COUNTER
  3. COLON HEALTH PROBIOTIC [Concomitant]
     Indication: DIVERTICULITIS
     Dosage: DAILY
  4. FOLIC ACID [Concomitant]
     Indication: VITAMIN SUPPLEMENTATION
     Dosage: 1MG DAILY
  5. BLACK COHASH [Concomitant]
     Indication: HOT FLUSH
     Dosage: DAILY
  6. MOVE FREE [Concomitant]
     Indication: ARTHROPATHY
  7. ADVIL [Concomitant]
     Indication: PAIN
     Dosage: AS NEEDED
  8. TYLENOL [Concomitant]
     Indication: PAIN
     Dosage: AS NEEDED
  9. ADVIL PM [Concomitant]
     Indication: INSOMNIA
     Dosage: AT BEDTIME
  10. MELATONIN [Concomitant]
     Indication: INSOMNIA
     Dosage: AT BEDTIME
  11. PREDNISONE [Concomitant]
     Indication: PRODUCT USED FOR UNKNOWN INDICATION
     Dosage: 5MG DAILY

REACTIONS (8)
  - Fatigue [Recovering/Resolving]
  - Balance disorder [Recovering/Resolving]
  - Illusion [Recovering/Resolving]
  - Malaise [Recovering/Resolving]
  - Headache [Recovering/Resolving]
  - Nausea [Recovering/Resolving]
  - Vomiting [Recovering/Resolving]
  - Diarrhoea [Recovering/Resolving]
